FAERS Safety Report 8891640 (Version 1)
Quarter: 2012Q4

REPORT INFORMATION
  Report Type: 
  Country: US (occurrence: US)
  Receive Date: 20121107
  Receipt Date: 20121107
  Transmission Date: 20130627
  Serious: No
  Sender: FDA-Public Use
  Company Number: US-AMGEN-USASP2011059056

PATIENT
  Age: 28 Year
  Sex: Female
  Weight: 104.31 kg

DRUGS (3)
  1. ENBREL [Suspect]
     Indication: PRODUCT USED FOR UNKNOWN INDICATION
     Dosage: 50 mg, qwk
     Route: 058
  2. EFFEXOR XR [Concomitant]
     Dosage: 150 mg, UNK
     Route: 048
  3. METHOTREXATE [Concomitant]
     Dosage: 2.5 mg, UNK
     Route: 048

REACTIONS (1)
  - Influenza like illness [Unknown]
